FAERS Safety Report 25494128 (Version 1)
Quarter: 2025Q2

REPORT INFORMATION
  Report Type: Spontaneous
  Country: US (occurrence: US)
  Receive Date: 20250630
  Receipt Date: 20250630
  Transmission Date: 20250716
  Serious: No
  Sender: VERTEX
  Company Number: US-VERTEX PHARMACEUTICALS-2025-010165

PATIENT

DRUGS (3)
  1. SUZETRIGINE [Suspect]
     Active Substance: SUZETRIGINE
     Indication: Pain
     Route: 048
     Dates: start: 20250609
  2. SUZETRIGINE [Suspect]
     Active Substance: SUZETRIGINE
     Indication: Intervertebral disc degeneration
  3. SUZETRIGINE [Suspect]
     Active Substance: SUZETRIGINE
     Indication: Spinal osteoarthritis

REACTIONS (5)
  - Euphoric mood [Not Recovered/Not Resolved]
  - Muscular weakness [Not Recovered/Not Resolved]
  - Fatigue [Not Recovered/Not Resolved]
  - Off label use [Unknown]
  - Tremor [Not Recovered/Not Resolved]

NARRATIVE: CASE EVENT DATE: 20250609
